FAERS Safety Report 17326519 (Version 1)
Quarter: 2020Q1

REPORT INFORMATION
  Report Type: Spontaneous
  Country: CN (occurrence: CN)
  Receive Date: 20200127
  Receipt Date: 20200127
  Transmission Date: 20200409
  Serious: Yes (Other)
  Sender: FDA-Public Use
  Company Number: CN-ASTRAZENECA-2020SE11513

PATIENT
  Age: 3425 Day
  Sex: Female
  Weight: 34 kg

DRUGS (4)
  1. PULMICORT RESPULES [Suspect]
     Active Substance: BUDESONIDE
     Indication: ASTHMA
     Route: 055
     Dates: start: 20200116, end: 20200116
  2. VENTOLIN [Suspect]
     Active Substance: ALBUTEROL SULFATE
     Indication: COUGH
     Route: 055
     Dates: start: 20200116, end: 20200116
  3. PULMICORT RESPULES [Suspect]
     Active Substance: BUDESONIDE
     Indication: COUGH
     Route: 055
     Dates: start: 20200116, end: 20200116
  4. VENTOLIN [Suspect]
     Active Substance: ALBUTEROL SULFATE
     Indication: ASTHMA
     Route: 055
     Dates: start: 20200116, end: 20200116

REACTIONS (4)
  - Oropharyngeal discomfort [Recovered/Resolved]
  - Hypoaesthesia [Recovered/Resolved]
  - Dizziness [Recovered/Resolved]
  - Pallor [Recovered/Resolved]

NARRATIVE: CASE EVENT DATE: 20200116
